FAERS Safety Report 13438614 (Version 2)
Quarter: 2017Q2

REPORT INFORMATION
  Report Type: Spontaneous
  Country: US (occurrence: US)
  Receive Date: 20170413
  Receipt Date: 20170524
  Transmission Date: 20170830
  Serious: No
  Sender: FDA-Public Use
  Company Number: US-PFIZER INC-131352

PATIENT
  Age: 40 Year
  Sex: Female

DRUGS (2)
  1. ETHYL CHLORIDE [Suspect]
     Active Substance: ETHYL CHLORIDE
     Indication: HYPOAESTHESIA
     Dosage: UNKNOWN, UNKNOWN
     Route: 061
     Dates: start: 20081218, end: 20081218
  2. EPINEPHRINE/LIDOCAINE HYDROCHLORIDE [Suspect]
     Active Substance: EPINEPHRINE\LIDOCAINE HYDROCHLORIDE
     Indication: ANAESTHESIA
     Dosage: 3 UNK, ONCE
     Route: 050
     Dates: start: 20081218, end: 20081218

REACTIONS (3)
  - Blood blister [Not Recovered/Not Resolved]
  - Skin discolouration [Not Recovered/Not Resolved]
  - Peripheral coldness [Not Recovered/Not Resolved]

NARRATIVE: CASE EVENT DATE: 20081219
